FAERS Safety Report 8950383 (Version 1)
Quarter: 2012Q4

REPORT INFORMATION
  Report Type: 
  Country: US (occurrence: US)
  Receive Date: 20121207
  Receipt Date: 20121207
  Transmission Date: 20130627
  Serious: No
  Sender: FDA-Public Use
  Company Number: US-PFIZER INC-2012306734

PATIENT
  Age: 53 Year
  Sex: Male
  Weight: 82.99 kg

DRUGS (4)
  1. CHANTIX [Suspect]
     Indication: SMOKING CESSATION THERAPY
     Dosage: 1 mg, 2x/day
     Route: 048
  2. METFORMIN [Concomitant]
     Indication: DIABETES
     Dosage: UNK
  3. GLIPIZIDE [Concomitant]
     Indication: DIABETES
     Dosage: UNK
  4. INSULIN [Concomitant]
     Indication: DIABETES
     Dosage: UNK

REACTIONS (2)
  - Nightmare [Unknown]
  - Abnormal dreams [Unknown]
